FAERS Safety Report 12944387 (Version 3)
Quarter: 2020Q3

REPORT INFORMATION
  Report Type: Report from Study
  Country: IT (occurrence: IT)
  Receive Date: 20161115
  Receipt Date: 20161121
  Transmission Date: 20201105
  Serious: Yes (Hospitalization)
  Sender: FDA-Public Use
  Company Number: IT-JNJFOC-20161113223

PATIENT
  Age: 50 Year
  Sex: Female

DRUGS (4)
  1. TRABECTEDIN [Suspect]
     Active Substance: TRABECTEDIN
     Indication: OVARIAN CANCER
     Dosage: INTENDED DOSE 1.10, ADMINISTERED DOSE 1.95, CYCLE OF LAST ADMINISTERATION 1
     Route: 042
     Dates: start: 20161011, end: 20161011
  2. DOXORUBICIN HYDROCHLORIDE. [Suspect]
     Active Substance: DOXORUBICIN HYDROCHLORIDE
     Indication: OVARIAN CANCER
     Dosage: INTENDED DOSE 30, ADMINISTERED DOSE 53,CYCLE OF LAST ADMINISTERATION 1
     Route: 042
     Dates: start: 20161011, end: 20161011
  3. TRABECTEDIN [Suspect]
     Active Substance: TRABECTEDIN
     Indication: OVARIAN CANCER
     Dosage: INTENDED DOSE 00.90, ADMINISTERED DOSE 1.60, CYCLE OF LAST ADMINISTERATION 2
     Route: 042
     Dates: start: 20161011
  4. DOXORUBICIN HYDROCHLORIDE. [Suspect]
     Active Substance: DOXORUBICIN HYDROCHLORIDE
     Indication: OVARIAN CANCER
     Dosage: INTENDED DOSE 25, ADMINISTERED DOSE 45,CYCLE OF LAST ADMINISTERATION 2
     Route: 042
     Dates: start: 20161011

REACTIONS (4)
  - Constipation [Recovered/Resolved]
  - Nausea [Recovered/Resolved]
  - Vomiting [Recovered/Resolved]
  - Abdominal pain [Recovered/Resolved]

NARRATIVE: CASE EVENT DATE: 20161017
